FAERS Safety Report 6013848-7 (Version None)
Quarter: 2008Q4

REPORT INFORMATION
  Report Type: 
  Country: None (occurrence: None)
  Receive Date: 20081218
  Receipt Date: 20081218
  Transmission Date: 20090506
  Serious: Yes (Hospitalization)
  Sender: FDA-Public Use
  Company Number: None

PATIENT
  Age: 56 Year
  Sex: Female
  Weight: 136.5327 kg

DRUGS (1)
  1. MEDROXYPROGESTERONE [Suspect]
     Dosage: 10MG DAILY PO
     Route: 048

REACTIONS (1)
  - PULMONARY EMBOLISM [None]
